FAERS Safety Report 8895250 (Version 10)
Quarter: 2013Q3

REPORT INFORMATION
  Report Type: Spontaneous
  Country: JP (occurrence: JP)
  Receive Date: 20121107
  Receipt Date: 20130802
  Transmission Date: 20140515
  Serious: Yes (Life-Threatening, Hospitalization, Other)
  Sender: FDA-Public Use
  Company Number: JP-PFIZER INC-2012273452

PATIENT
  Age: 35 Year
  Sex: Male
  Weight: 46.2 kg

DRUGS (32)
  1. FOSPHENYTOIN SODIUM [Suspect]
     Indication: STATUS EPILEPTICUS
     Dosage: 7.5 MG/KG, UNK
     Dates: start: 20120925
  2. FOSPHENYTOIN SODIUM [Suspect]
     Indication: EPILEPSY
     Dosage: 9 MG/KG, UNK
     Dates: start: 20120926
  3. FOSPHENYTOIN SODIUM [Suspect]
     Dosage: 20 MG/KG, UNK
     Dates: start: 20120927
  4. FOSPHENYTOIN SODIUM [Suspect]
     Dosage: 12 MG/KG, UNK
     Dates: start: 20120928
  5. FOSPHENYTOIN SODIUM [Suspect]
     Dosage: 12 MG/KG, UNK
     Dates: start: 20120929, end: 20120929
  6. FOSPHENYTOIN SODIUM [Suspect]
     Dosage: 12 MG/KG, UNK
     Dates: start: 20120930
  7. FOSPHENYTOIN SODIUM [Suspect]
     Dosage: 12 MG/KG, UNK
     Dates: start: 20121001
  8. FOSPHENYTOIN SODIUM [Suspect]
     Dosage: 12 MG/KG, UNK
     Dates: start: 20121002, end: 20121002
  9. FOSPHENYTOIN SODIUM [Suspect]
     Dosage: 12 MG/KG, UNK
     Dates: start: 20121003, end: 20121003
  10. FOSPHENYTOIN SODIUM [Suspect]
     Dosage: 7.5 MG/KG, UNK
     Dates: start: 20121004, end: 20121004
  11. FOSPHENYTOIN SODIUM [Suspect]
     Dosage: 2.7 ML (ABOUT 200 MG), 1X/DAY
     Route: 042
     Dates: start: 20121005, end: 20121006
  12. FOSPHENYTOIN SODIUM [Suspect]
     Dosage: 2000 MG, 1X/DAY
     Route: 042
     Dates: start: 20121007
  13. FOSPHENYTOIN SODIUM [Suspect]
     Dosage: 4 MG/KG, UNK
     Dates: start: 20121005, end: 20121005
  14. FOSPHENYTOIN SODIUM [Suspect]
     Dosage: 4 MG/KG, UNK
     Dates: start: 20121006, end: 20121006
  15. FOSPHENYTOIN SODIUM [Suspect]
     Dosage: 10 MG/KG, UNK
     Dates: start: 20121007, end: 20121007
  16. FOSPHENYTOIN SODIUM [Suspect]
     Dosage: 20 MG/KG, UNK
     Dates: start: 20121014, end: 20121014
  17. FOSPHENYTOIN SODIUM [Suspect]
     Dosage: 20 MG/KG, UNK
     Dates: start: 20121015, end: 20121015
  18. FOSPHENYTOIN SODIUM [Suspect]
     Dosage: 7.5 MG/KG, UNK
     Dates: start: 20121016, end: 20121016
  19. FOSPHENYTOIN SODIUM [Suspect]
     Dosage: 7.5 MG/KG, UNK
     Dates: start: 20121017, end: 20121017
  20. FOSPHENYTOIN SODIUM [Suspect]
     Dosage: 10.5 MG/KG, UNK
     Dates: start: 20121018, end: 20121018
  21. MORPHINE HYDROCHLORIDE [Concomitant]
     Indication: SEDATION
     Dosage: 5 MG, UNK
     Route: 042
     Dates: start: 20121008
  22. BISOLVON [Concomitant]
     Indication: PNEUMONIA ASPIRATION
     Dosage: 4 MG/DAY
     Route: 042
     Dates: start: 20120925, end: 20121010
  23. TEGRETOL [Concomitant]
     Indication: EPILEPSY
     Dosage: 800 MG/DAY, ONGOING 5 DAYS AFTER ADMINISTRATION OF THIS DRUG
     Route: 042
     Dates: start: 20120926
  24. TAKEPRON [Concomitant]
     Indication: GASTROINTESTINAL HAEMORRHAGE
     Dosage: UNK
  25. L-CARTIN [Concomitant]
     Indication: HYPERAMMONAEMIA
     Dosage: UNK
     Route: 048
  26. MONILAC [Concomitant]
     Indication: HYPERAMMONAEMIA
     Dosage: UNK
     Route: 048
  27. CERCINE [Concomitant]
     Dosage: 17.5, UNK
     Dates: start: 20120924
  28. ALEVIATIN [Concomitant]
     Dosage: 750MG, UNK
     Route: 048
     Dates: start: 20120924
  29. PHENOBAL [Concomitant]
     Dosage: 200MG, UNK
     Dates: start: 20120924
  30. DEPAKENE [Concomitant]
     Indication: EPILEPSY
     Dosage: UNK
     Route: 042
     Dates: start: 20120925, end: 20120927
  31. HORIZON [Concomitant]
     Indication: EPILEPSY
     Dosage: 10 MG/DAY
     Route: 042
     Dates: start: 20120925, end: 20121008
  32. NOBELBAR [Concomitant]
     Indication: EPILEPSY
     Dosage: 200 - 750 MG/DAY
     Route: 042
     Dates: start: 20120925, end: 20120929

REACTIONS (11)
  - Medication error [Recovering/Resolving]
  - Overdose [Recovering/Resolving]
  - Toxicity to various agents [Recovered/Resolved]
  - Convulsion [Recovering/Resolving]
  - Dyspnoea [Recovering/Resolving]
  - Drug level increased [Recovering/Resolving]
  - Altered state of consciousness [Unknown]
  - Aspiration [Unknown]
  - Pneumonia [Unknown]
  - Dyskinesia [Unknown]
  - Blood pressure decreased [Recovered/Resolved]
